FAERS Safety Report 23558477 (Version 1)
Quarter: 2024Q1

REPORT INFORMATION
  Report Type: Spontaneous
  Country: IN (occurrence: IN)
  Receive Date: 20240223
  Receipt Date: 20240223
  Transmission Date: 20240410
  Serious: Yes (Other)
  Sender: FDA-Public Use
  Company Number: IN-SUN PHARMACEUTICAL INDUSTRIES LTD-2024R1-432635

PATIENT
  Age: 25 Year
  Sex: Female

DRUGS (5)
  1. DIGOXIN [Suspect]
     Active Substance: DIGOXIN
     Indication: Supraventricular tachycardia
     Dosage: 0.25 MILLIGRAM, QD
     Route: 065
  2. METOPROLOL [Suspect]
     Active Substance: METOPROLOL
     Indication: Supraventricular tachycardia
     Dosage: 12.5 MILLIGRAM
     Route: 065
  3. VERAPAMIL [Suspect]
     Active Substance: VERAPAMIL HYDROCHLORIDE
     Indication: Sinus tachycardia
     Dosage: 5 MILLIGRAM
     Route: 042
  4. VERAPAMIL [Suspect]
     Active Substance: VERAPAMIL HYDROCHLORIDE
     Indication: Sinus tachycardia
     Dosage: 120 MILLIGRAM, BID
     Route: 048
  5. DILTIAZEM [Suspect]
     Active Substance: DILTIAZEM
     Indication: Sinus tachycardia
     Dosage: 12.5 MILLIGRAM
     Route: 065

REACTIONS (3)
  - Exposure during pregnancy [Unknown]
  - Palpitations [Unknown]
  - Live birth [Unknown]
